FAERS Safety Report 7934966-X (Version None)
Quarter: 2011Q4

REPORT INFORMATION
  Report Type: 
  Country: None (occurrence: None)
  Receive Date: 20111122
  Receipt Date: 20111115
  Transmission Date: 20120403
  Serious: Yes (Hospitalization)
  Sender: FDA-Public Use
  Company Number: NZ-B.I. PHARMACEUTICALS,INC./RIDGEFIELD-2011-AU-01837AU

PATIENT
  Sex: Male

DRUGS (5)
  1. SIMVASTATIN [Concomitant]
     Dosage: 10 MG
  2. PRADAXA [Suspect]
     Indication: ATRIAL FIBRILLATION
     Dates: end: 20111017
  3. CILAZAPRIL [Concomitant]
     Dosage: 0.5 MG
  4. PENMIX [Concomitant]
     Dosage: 20U MANE, 20U PM
  5. LEVOTHYROXINE SODIUM [Concomitant]
     Dosage: 200 MCG

REACTIONS (1)
  - CARDIAC VALVE REPLACEMENT COMPLICATION [None]
